FAERS Safety Report 4915690-4 (Version None)
Quarter: 2006Q1

REPORT INFORMATION
  Report Type: 
  Country: None (occurrence: None)
  Receive Date: 20060213
  Receipt Date: 20060130
  Transmission Date: 20060701
  Serious: Yes (Other)
  Sender: FDA-Public Use
  Company Number: S06-GER-00086-01

PATIENT
  Age: 19 Year
  Sex: Female
  Weight: 62 kg

DRUGS (3)
  1. CITALOPRAM [Suspect]
     Dosage: 560 MG ONCE PO
     Route: 048
  2. RISPERIDONE [Suspect]
     Dosage: 10 MG QD PO
     Route: 048
  3. RISPERIDONE [Suspect]
     Dosage: 1 MG ONCE PO
     Route: 048

REACTIONS (5)
  - ACIDOSIS [None]
  - CONVULSION [None]
  - FATIGUE [None]
  - MULTIPLE DRUG OVERDOSE [None]
  - SUICIDE ATTEMPT [None]
